FAERS Safety Report 12239600 (Version 2)
Quarter: 2016Q2

REPORT INFORMATION
  Report Type: Spontaneous
  Country: BR (occurrence: BR)
  Receive Date: 20160405
  Receipt Date: 20160411
  Transmission Date: 20160815
  Serious: Yes (Hospitalization, Other)
  Sender: FDA-Public Use
  Company Number: BR-TEVA-646880ISR

PATIENT
  Sex: Male
  Weight: 61 kg

DRUGS (9)
  1. TAMARINE [Concomitant]
  2. MUVINLAX [Concomitant]
     Active Substance: ELECTROLYTES NOS\POLYETHYLENE GLYCOL 3350
  3. DIPYRONE [Concomitant]
     Active Substance: DIPYRONE
  4. EUROPROSTATIM [Concomitant]
  5. FAULDFLUOR [Suspect]
     Active Substance: FLUOROURACIL
     Indication: COLON CANCER
     Route: 042
     Dates: start: 20151014
  6. FAULDFLUOR BI [Suspect]
     Active Substance: FLUOROURACIL
     Indication: COLON CANCER
     Route: 042
     Dates: start: 20151014
  7. TEVAOXALI [Suspect]
     Active Substance: OXALIPLATIN
     Indication: COLON CANCER
     Route: 042
     Dates: start: 20151014
  8. TRAMAL SOS [Concomitant]
  9. TYLEX SOS [Concomitant]

REACTIONS (11)
  - Febrile neutropenia [Unknown]
  - Pain [Not Recovered/Not Resolved]
  - Hypotension [Unknown]
  - Back pain [Unknown]
  - Urinary retention [Unknown]
  - Diarrhoea [Recovered/Resolved]
  - Renal impairment [Unknown]
  - Thoracic vertebral fracture [Unknown]
  - Pseudomonal bacteraemia [Unknown]
  - Atrial fibrillation [Unknown]
  - Mucosal inflammation [Unknown]
